FAERS Safety Report 17284579 (Version 1)
Quarter: 2020Q1

REPORT INFORMATION
  Report Type: Spontaneous
  Country: US (occurrence: US)
  Receive Date: 20200117
  Receipt Date: 20200117
  Transmission Date: 20200409
  Serious: No
  Sender: FDA-Public Use
  Company Number: US-ELI_LILLY_AND_COMPANY-US201912013682

PATIENT
  Age: 36 Year
  Sex: Female

DRUGS (1)
  1. EMGALITY [Suspect]
     Active Substance: GALCANEZUMAB-GNLM
     Indication: MIGRAINE
     Dosage: 120 MG, OTHER
     Route: 058
     Dates: start: 201911

REACTIONS (6)
  - Insomnia [Recovered/Resolved]
  - Burn oral cavity [Recovered/Resolved]
  - Alopecia [Recovered/Resolved]
  - Influenza like illness [Recovered/Resolved]
  - Migraine [Recovered/Resolved]
  - Underdose [Unknown]

NARRATIVE: CASE EVENT DATE: 201911
